FAERS Safety Report 17137571 (Version 1)
Quarter: 2019Q4

REPORT INFORMATION
  Report Type: Spontaneous
  Country: IT (occurrence: IT)
  Receive Date: 20191210
  Receipt Date: 20191210
  Transmission Date: 20200122
  Serious: Yes (Other)
  Sender: FDA-Public Use
  Company Number: IT-ABBVIE-19K-083-3007558-00

PATIENT
  Sex: Male

DRUGS (4)
  1. VENCLYXTO [Suspect]
     Active Substance: VENETOCLAX
     Indication: CHRONIC LYMPHOCYTIC LEUKAEMIA
     Dosage: 20 MG
     Route: 048
     Dates: start: 20191109, end: 201911
  2. BACTRIM [Concomitant]
     Active Substance: SULFAMETHOXAZOLE\TRIMETHOPRIM
     Indication: PRODUCT USED FOR UNKNOWN INDICATION
     Route: 048
     Dates: start: 20191112
  3. ACICLOVIR [Concomitant]
     Active Substance: ACYCLOVIR
     Indication: PRODUCT USED FOR UNKNOWN INDICATION
     Route: 048
     Dates: start: 20191112
  4. VENCLYXTO [Suspect]
     Active Substance: VENETOCLAX
     Dosage: 50 MG
     Route: 048
     Dates: start: 20191112

REACTIONS (4)
  - Lymphocyte count increased [Unknown]
  - Tumour lysis syndrome [Recovered/Resolved]
  - Renal failure [Unknown]
  - Splenomegaly [Unknown]

NARRATIVE: CASE EVENT DATE: 2019
